FAERS Safety Report 19828161 (Version 4)
Quarter: 2021Q3

REPORT INFORMATION
  Report Type: Report from Study
  Country: US (occurrence: US)
  Receive Date: 20210914
  Receipt Date: 20210930
  Transmission Date: 20211014
  Serious: Yes (Other)
  Sender: FDA-Public Use
  Company Number: NVSC2021US207551

PATIENT
  Sex: Male

DRUGS (2)
  1. ENTRESTO [Suspect]
     Active Substance: SACUBITRIL\VALSARTAN
     Dosage: 1 DF (49/51 MG), BID
     Route: 048
  2. ENTRESTO [Suspect]
     Active Substance: SACUBITRIL\VALSARTAN
     Indication: PRODUCT USED FOR UNKNOWN INDICATION
     Dosage: 1 DF (26/24 MG), BID
     Route: 048
     Dates: start: 20210814

REACTIONS (6)
  - Red blood cell abnormality [Unknown]
  - Diabetes mellitus [Unknown]
  - White blood cell disorder [Unknown]
  - Platelet production decreased [Unknown]
  - Fluid retention [Unknown]
  - Blood glucose increased [Not Recovered/Not Resolved]
